FAERS Safety Report 15897763 (Version 5)
Quarter: 2024Q3

REPORT INFORMATION
  Report Type: Spontaneous
  Country: PL (occurrence: PL)
  Receive Date: 20190201
  Receipt Date: 20240926
  Transmission Date: 20241017
  Serious: Yes (Other)
  Sender: MYLAN
  Company Number: PL-ACCORD-069446

PATIENT
  Age: 65 Year
  Sex: Female

DRUGS (29)
  1. ATORVASTATIN [Interacting]
     Active Substance: ATORVASTATIN
     Indication: Hyperlipidaemia
     Dosage: 20 MILLIGRAM, QD
     Route: 065
  2. ATORVASTATIN [Interacting]
     Active Substance: ATORVASTATIN
     Indication: Hypertension
  3. ATORVASTATIN [Interacting]
     Active Substance: ATORVASTATIN
     Indication: Arrhythmia supraventricular
  4. AMLODIPINE [Interacting]
     Active Substance: AMLODIPINE BESYLATE
     Indication: Hypertension
     Dosage: 5 MILLIGRAM, QD, (5 MG / D)
     Route: 065
  5. AMLODIPINE [Interacting]
     Active Substance: AMLODIPINE BESYLATE
     Indication: Hyperlipidaemia
  6. AMLODIPINE [Interacting]
     Active Substance: AMLODIPINE BESYLATE
     Indication: Arrhythmia supraventricular
  7. SERTRALINE [Interacting]
     Active Substance: SERTRALINE HYDROCHLORIDE
     Indication: Depression
     Dosage: 100 MILLIGRAM, QD, (100 MG IN THE MORNING)
     Route: 065
  8. PROPAFENONE [Interacting]
     Active Substance: PROPAFENONE
     Indication: Arrhythmia supraventricular
     Dosage: 450 MILLIGRAM, QD
     Route: 065
  9. PROPAFENONE [Interacting]
     Active Substance: PROPAFENONE
     Indication: Hyperlipidaemia
     Dosage: 150 MILLIGRAM, QD
     Route: 065
  10. PROPAFENONE [Interacting]
     Active Substance: PROPAFENONE
     Indication: Hypertension
  11. LANSOPRAZOLE [Interacting]
     Active Substance: LANSOPRAZOLE
     Indication: Hypertension
     Dosage: 15 MILLIGRAM, QD, (15 MG / D)
     Route: 065
  12. LANSOPRAZOLE [Interacting]
     Active Substance: LANSOPRAZOLE
     Indication: Arrhythmia supraventricular
     Dosage: UNK
     Route: 065
  13. LANSOPRAZOLE [Interacting]
     Active Substance: LANSOPRAZOLE
     Indication: Hyperlipidaemia
     Dosage: 15 MILLIGRAM, QD, (15 MG / D)
     Route: 065
  14. CANDESARTAN [Interacting]
     Active Substance: CANDESARTAN
     Indication: Hypertension
     Dosage: 16 MG + 12.5 MG DAILY
     Route: 065
  15. LAMOTRIGINE [Interacting]
     Active Substance: LAMOTRIGINE
     Indication: Depression
     Dosage: 150 MILLIGRAM, QD, (150 MG / D)
     Route: 065
  16. PERAZINE [Interacting]
     Active Substance: PERAZINE
     Indication: Depression
     Dosage: 75 MILLIGRAM, QD, (75 MG / D)
     Route: 065
  17. LEVOMEPROMAZINE [Interacting]
     Active Substance: LEVOMEPROMAZINE
     Indication: Depression
     Dosage: 50 MILLIGRAM, HS, (50 MG AT BEDTIME)
     Route: 065
  18. BUSPIRONE [Interacting]
     Active Substance: BUSPIRONE HYDROCHLORIDE
     Indication: Depression
     Dosage: 10 MILLIGRAM, QD
     Route: 065
  19. ENALAPRIL\HYDROCHLOROTHIAZIDE [Interacting]
     Active Substance: ENALAPRIL\HYDROCHLOROTHIAZIDE
     Indication: Arrhythmia supraventricular
     Dosage: 16 MILLIGRAM, QD, (16 MG, 1X/DAY (ENALAPRIL)
     Route: 065
  20. ENALAPRIL\HYDROCHLOROTHIAZIDE [Interacting]
     Active Substance: ENALAPRIL\HYDROCHLOROTHIAZIDE
     Indication: Hypertension
     Dosage: 12.5 MILLIGRAM, QD, (12.5 MG, 1X/DAY (HYDROCHLOROTHIAZIDE))
     Route: 065
  21. ENALAPRIL\HYDROCHLOROTHIAZIDE [Interacting]
     Active Substance: ENALAPRIL\HYDROCHLOROTHIAZIDE
     Indication: Hyperlipidaemia
     Dosage: UNK
     Route: 065
  22. VINPOCETINE [Interacting]
     Active Substance: VINPOCETINE
     Indication: Depression
     Dosage: 15 MILLIGRAM, QD, (15 MG / D)
     Route: 065
  23. SULPIRIDE ADAMANTANECARBOXYLATE [Suspect]
     Active Substance: SULPIRIDE ADAMANTANECARBOXYLATE
     Indication: Depression
     Dosage: 150 MILLIGRAM, QD
     Route: 065
  24. SULPIRIDE ADAMANTANECARBOXYLATE [Suspect]
     Active Substance: SULPIRIDE ADAMANTANECARBOXYLATE
     Dosage: 50 MILLIGRAM, QD
     Route: 065
  25. SULPIRIDE ADAMANTANECARBOXYLATE [Suspect]
     Active Substance: SULPIRIDE ADAMANTANECARBOXYLATE
     Dosage: 10 MILLIGRAM, QD
     Route: 065
  26. ASPIRIN [Interacting]
     Active Substance: ASPIRIN
     Indication: Hypertension
     Dosage: 75 MILLIGRAM, QD
     Route: 065
  27. ASPIRIN [Interacting]
     Active Substance: ASPIRIN
     Indication: Arrhythmia supraventricular
     Dosage: UNK
     Route: 065
  28. ASPIRIN [Interacting]
     Active Substance: ASPIRIN
     Indication: Hyperlipidaemia
     Dosage: 75 MILLIGRAM, QD
     Route: 065
  29. AMITRIPTYLINE [Interacting]
     Active Substance: AMITRIPTYLINE
     Indication: Depression
     Dosage: 225 MILLIGRAM, QD, (225 MG / D)
     Route: 065

REACTIONS (26)
  - Extrapyramidal disorder [Recovered/Resolved]
  - Balance disorder [Recovered/Resolved]
  - Cognitive disorder [Recovering/Resolving]
  - Drug interaction [Recovering/Resolving]
  - Anxiety [Unknown]
  - Somnolence [Recovering/Resolving]
  - Nervous system disorder [Unknown]
  - Dizziness [Recovered/Resolved]
  - Overweight [Unknown]
  - Depression [Recovering/Resolving]
  - Sleep disorder [Recovering/Resolving]
  - Fatigue [Recovering/Resolving]
  - Emotional disorder [Recovering/Resolving]
  - Flat affect [Recovering/Resolving]
  - Fall [Recovering/Resolving]
  - Amnesia [Recovering/Resolving]
  - Drug ineffective [Recovering/Resolving]
  - Depressed mood [Recovering/Resolving]
  - Bradykinesia [Recovered/Resolved]
  - Tension [Unknown]
  - Mental disorder [Recovering/Resolving]
  - Psychomotor retardation [Recovering/Resolving]
  - Anhedonia [Recovering/Resolving]
  - Disturbance in attention [Recovering/Resolving]
  - Insomnia [Recovering/Resolving]
  - Sleep deficit [Recovered/Resolved]
